FAERS Safety Report 17545831 (Version 2)
Quarter: 2020Q2

REPORT INFORMATION
  Report Type: Spontaneous
  Country: US (occurrence: US)
  Receive Date: 20200316
  Receipt Date: 20200512
  Transmission Date: 20200713
  Serious: No
  Sender: FDA-Public Use
  Company Number: US-BAYER-2020-042413

PATIENT
  Age: 26 Year
  Sex: Female

DRUGS (2)
  1. SKYLA [Interacting]
     Active Substance: LEVONORGESTREL
     Dosage: 14 ?G PER DAY CONT
     Route: 015
  2. SKYLA [Suspect]
     Active Substance: LEVONORGESTREL
     Dosage: 14 ?G PER DAY CONT
     Route: 015
     Dates: start: 202001

REACTIONS (2)
  - Abscess [None]
  - Drug interaction [None]

NARRATIVE: CASE EVENT DATE: 2020
